FAERS Safety Report 5690010-9 (Version None)
Quarter: 2008Q2

REPORT INFORMATION
  Report Type: 
  Country: None (occurrence: None)
  Receive Date: 20080401
  Receipt Date: 20080122
  Transmission Date: 20081010
  Serious: No
  Sender: FDA-Public Use
  Company Number: A0706130A

PATIENT

DRUGS (1)
  1. FLONASE [Suspect]
     Indication: DRUG USE FOR UNKNOWN INDICATION

REACTIONS (1)
  - DRUG TOLERANCE INCREASED [None]
